FAERS Safety Report 15451541 (Version 1)
Quarter: 2018Q4

REPORT INFORMATION
  Report Type: Spontaneous
  Country: DK (occurrence: DK)
  Receive Date: 20181001
  Receipt Date: 20181001
  Transmission Date: 20190204
  Serious: Yes (Congenital Anomaly)
  Sender: FDA-Public Use
  Company Number: DK-ROCHE-2189418

PATIENT

DRUGS (3)
  1. XOLAIR [Suspect]
     Active Substance: OMALIZUMAB
     Indication: PRODUCT USED FOR UNKNOWN INDICATION
     Route: 064
  2. FEXOFENADINE [Concomitant]
     Active Substance: FEXOFENADINE\FEXOFENADINE HYDROCHLORIDE
     Indication: URTICARIA
     Dosage: STYRKE: 180 MG
     Route: 064
     Dates: start: 20180516
  3. PREDNISOLONE. [Concomitant]
     Active Substance: PREDNISOLONE
     Indication: URTICARIA
     Dosage: 5 MG, UNK (EFTER SKRIFTLIG ANVISNING)
     Route: 064

REACTIONS (2)
  - Teratogenicity [Not Recovered/Not Resolved]
  - Foetal exposure during pregnancy [Unknown]

NARRATIVE: CASE EVENT DATE: 201806
